FAERS Safety Report 24947702 (Version 1)
Quarter: 2025Q1

REPORT INFORMATION
  Report Type: Other
  Country: FR (occurrence: FR)
  Receive Date: 20250210
  Receipt Date: 20250210
  Transmission Date: 20250408
  Serious: Yes (Other)
  Sender: APPCO PHARMA LLC
  Company Number: FR-Appco Pharma LLC-2170851

PATIENT
  Age: 41 Year
  Sex: Female

DRUGS (2)
  1. METRONIDAZOLE [Suspect]
     Active Substance: METRONIDAZOLE
     Indication: Odynophagia
  2. TRAMADOL [Suspect]
     Active Substance: TRAMADOL

REACTIONS (1)
  - Porphyria acute [Recovered/Resolved]
